FAERS Safety Report 4559411-6 (Version None)
Quarter: 2005Q1

REPORT INFORMATION
  Report Type: 
  Country: None (occurrence: None)
  Receive Date: 20050120
  Receipt Date: 20050120
  Transmission Date: 20050727
  Serious: Yes (Hospitalization)
  Sender: FDA-Public Use
  Company Number: None

PATIENT
  Age: 62 Year

DRUGS (9)
  1. PLAVIX [Suspect]
     Indication: CAROTID ARTERY STENOSIS
     Dosage: 75 MG QD
  2. ASPIRIN [Suspect]
     Indication: CAROTID ARTERY STENOSIS
     Dosage: 325 MG QD
  3. NAPROSYN [Suspect]
     Indication: CAROTID ARTERY STENOSIS
     Dosage: 500MG BID
  4. ALBUTEROL [Concomitant]
  5. FLEXERIL [Concomitant]
  6. LISINOPRIL [Concomitant]
  7. METOPROLOL [Concomitant]
  8. SILDENAFIL [Concomitant]
  9. SIMVASTATIN [Concomitant]

REACTIONS (4)
  - CONTUSION [None]
  - DIZZINESS [None]
  - GASTROINTESTINAL HAEMORRHAGE [None]
  - MELAENA [None]
